FAERS Safety Report 13884232 (Version 1)
Quarter: 2017Q3

REPORT INFORMATION
  Report Type: Spontaneous
  Country: CA (occurrence: CA)
  Receive Date: 20170821
  Receipt Date: 20170821
  Transmission Date: 20171127
  Serious: Yes (Hospitalization, Other)
  Sender: FDA-Public Use
  Company Number: CA-ORION CORPORATION ORION PHARMA-TREX2017-2560

PATIENT
  Age: 42 Year
  Sex: Male

DRUGS (3)
  1. METHOTREXATE. [Suspect]
     Active Substance: METHOTREXATE
     Indication: UVEITIS
     Route: 065
  2. PREDNISONE. [Suspect]
     Active Substance: PREDNISONE
     Indication: SARCOIDOSIS
     Route: 065
  3. PREDNISONE. [Suspect]
     Active Substance: PREDNISONE
     Indication: UVEITIS
     Route: 065

REACTIONS (11)
  - Dyspnoea [Unknown]
  - Gamma-glutamyltransferase increased [Unknown]
  - Lung infiltration [Unknown]
  - Headache [Unknown]
  - Abdominal lymphadenopathy [Unknown]
  - Histoplasmosis disseminated [Recovered/Resolved]
  - Pancytopenia [Unknown]
  - Blood alkaline phosphatase increased [Unknown]
  - Splenomegaly [Unknown]
  - Hypoxia [Unknown]
  - Fatigue [Unknown]
